FAERS Safety Report 13214654 (Version 1)
Quarter: 2017Q1

REPORT INFORMATION
  Report Type: Spontaneous
  Country: US (occurrence: US)
  Receive Date: 20170210
  Receipt Date: 20170210
  Transmission Date: 20170428
  Serious: No
  Sender: FDA-Public Use
  Company Number: US-THE RITEDOSE CORPORATION-2015RIT000155

PATIENT
  Age: 69 Year
  Sex: Female
  Weight: 74.38 kg

DRUGS (10)
  1. ALBUTEROL SULFATE INHALATION SOLUTION [Suspect]
     Active Substance: ALBUTEROL SULFATE
     Indication: BRONCHOSPASM
     Dosage: 0.083 % INHALE 2 PUFFS, PRN
     Route: 055
     Dates: start: 20151226, end: 20151226
  2. ALBUTEROL SULFATE INHALATION SOLUTION [Suspect]
     Active Substance: ALBUTEROL SULFATE
     Indication: BRONCHITIS
  3. CLINDAMYCIN. [Concomitant]
     Active Substance: CLINDAMYCIN
     Dosage: UNK
  4. ALTACE [Concomitant]
     Active Substance: RAMIPRIL
     Dosage: UNK
  5. LOPRESSOR [Concomitant]
     Active Substance: METOPROLOL TARTRATE
     Dosage: UNK
  6. ALBUTEROL SULFATE INHALATION SOLUTION [Suspect]
     Active Substance: ALBUTEROL SULFATE
     Indication: WHEEZING
  7. FLEXERIL [Concomitant]
     Active Substance: CYCLOBENZAPRINE HYDROCHLORIDE
     Dosage: UNK
  8. PROTONIX                           /00661201/ [Concomitant]
     Active Substance: OMEPRAZOLE
     Dosage: UNK
  9. ALBUTEROL SULFATE INHALATION SOLUTION [Suspect]
     Active Substance: ALBUTEROL SULFATE
     Indication: ASTHMA
  10. SYNTHROID [Concomitant]
     Active Substance: LEVOTHYROXINE SODIUM
     Dosage: UNK

REACTIONS (5)
  - Asthenia [Not Recovered/Not Resolved]
  - Dizziness [Recovered/Resolved]
  - Sensory loss [Not Recovered/Not Resolved]
  - Burning sensation [Not Recovered/Not Resolved]
  - Paraesthesia [Not Recovered/Not Resolved]

NARRATIVE: CASE EVENT DATE: 20151226
